FAERS Safety Report 17538694 (Version 1)
Quarter: 2020Q1

REPORT INFORMATION
  Report Type: Spontaneous
  Country: US (occurrence: US)
  Receive Date: 20200306
  Receipt Date: 20200306
  Transmission Date: 20200409
  Serious: Yes (Hospitalization)
  Sender: FDA-Public Use
  Company Number: None

PATIENT
  Age: 63 Year
  Sex: Male

DRUGS (7)
  1. PANTOPRAZOLE [Concomitant]
     Active Substance: PANTOPRAZOLE
  2. SYMTUZA [Concomitant]
     Active Substance: COBICISTAT\DARUNAVIR\EMTRICITABINE\TENOFOVIR ALAFENAMIDE
  3. TRVICAY [Concomitant]
  4. DOXYCYCLINE. [Concomitant]
     Active Substance: DOXYCYCLINE
  5. MIRTAZAPINE. [Concomitant]
     Active Substance: MIRTAZAPINE
  6. PIFELTRO [Suspect]
     Active Substance: DORAVIRINE
     Indication: X-RAY
     Route: 048
  7. VOSEVI [Concomitant]
     Active Substance: SOFOSBUVIR\VELPATASVIR\VOXILAPREVIR

REACTIONS (1)
  - Hospitalisation [None]
